FAERS Safety Report 5081453-5 (Version None)
Quarter: 2006Q3

REPORT INFORMATION
  Report Type: 
  Country: None (occurrence: None)
  Receive Date: 20060811
  Receipt Date: 20060802
  Transmission Date: 20061208
  Serious: Yes (Other)
  Sender: FDA-Public Use
  Company Number: 2006-08-0505

PATIENT

DRUGS (1)
  1. ASMANEX TWISTHALER [Suspect]
     Dosage: INHALATION
     Route: 055

REACTIONS (1)
  - HAEMOPTYSIS [None]
